FAERS Safety Report 8090927-4 (Version None)
Quarter: 2012Q1

REPORT INFORMATION
  Report Type: 
  Country: None (occurrence: None)
  Receive Date: 20120128
  Receipt Date: 20110819
  Transmission Date: 20120608
  Serious: Yes (Other)
  Sender: FDA-Public Use
  Company Number: US-ABBOTT-11P-163-0848075-00

PATIENT
  Sex: Female
  Weight: 95.34 kg

DRUGS (6)
  1. TOPROL-XL [Concomitant]
     Indication: HYPERTENSION
     Dosage: DAILY
  2. HUMIRA [Suspect]
     Indication: RHEUMATOID ARTHRITIS
     Route: 058
     Dates: start: 20101101, end: 20110401
  3. 3 UNKNOWN BLOOD PRESSURE MEDICATIONS [Concomitant]
     Indication: HYPERTENSION
  4. TEKTURNA [Concomitant]
     Indication: HYPERTENSION
     Dosage: DAILY
  5. METHOTREXATE [Concomitant]
     Indication: PRODUCT USED FOR UNKNOWN INDICATION
     Dates: start: 20100101, end: 20110401
  6. HYZAAR [Concomitant]
     Indication: HYPERTENSION
     Dosage: DAILY, 100/12.5 MILLIGRAMS

REACTIONS (3)
  - PANCREATIC CYST [None]
  - BACK PAIN [None]
  - RENAL CANCER [None]
